FAERS Safety Report 9538705 (Version 1)
Quarter: 2013Q2

REPORT INFORMATION
  Report Type: Spontaneous
  Country: US (occurrence: None)
  Receive Date: 20130517
  Receipt Date: 20130517
  Transmission Date: 20140414
  Serious: No
  Sender: FDA-Public Use
  Company Number: 1000043892

PATIENT
  Age: 50 Year
  Sex: Female

DRUGS (5)
  1. VIIBRYD (VILAZODONE HYDROCHLORIDE) (10 MILLIGRAM, TABLETS) [Suspect]
     Indication: ANXIETY
     Dosage: 10 MG (10 MG, 1 IN 1 D), ORAL
     Route: 048
     Dates: start: 201303, end: 201303
  2. LISINOPRIL (LISINOPRIL) (LISINOPRIL) [Concomitant]
  3. NIASPAN (NICOTINIC ACID) (NICOTINIC ACID) [Concomitant]
  4. PHENTERMINE (PHENTERMINE) (PHENTERMINE) [Concomitant]
  5. SYNTHROID (LEVOTHYROXINE SODIUM) (LEVOTHYROXINE SODIUM) [Concomitant]

REACTIONS (3)
  - Disturbance in attention [None]
  - Memory impairment [None]
  - Off label use [None]
